FAERS Safety Report 24576728 (Version 1)
Quarter: 2024Q4

REPORT INFORMATION
  Report Type: Spontaneous
  Country: CN (occurrence: CN)
  Receive Date: 20241104
  Receipt Date: 20241104
  Transmission Date: 20250114
  Serious: Yes (Death)
  Sender: JOHNSON AND JOHNSON
  Company Number: CN-JNJFOC-20241101782

PATIENT

DRUGS (1)
  1. DARZALEX [Suspect]
     Active Substance: DARATUMUMAB
     Indication: Primary amyloidosis
     Route: 065

REACTIONS (5)
  - Cardiac death [Fatal]
  - Disseminated intravascular coagulation [Fatal]
  - Lymphopenia [Unknown]
  - Infusion related reaction [Unknown]
  - Off label use [Unknown]
